FAERS Safety Report 8175440-8 (Version None)
Quarter: 2012Q1

REPORT INFORMATION
  Report Type: 
  Country: None (occurrence: None)
  Receive Date: 20120229
  Receipt Date: 20120215
  Transmission Date: 20120608
  Serious: Yes (Other)
  Sender: FDA-Public Use
  Company Number: SK-ROCHE-1043177

PATIENT
  Age: 56 Year
  Sex: Male

DRUGS (1)
  1. XOLAIR [Suspect]
     Indication: ASTHMA
     Route: 030
     Dates: start: 20080101

REACTIONS (8)
  - INCORRECT ROUTE OF DRUG ADMINISTRATION [None]
  - COUGH [None]
  - RESPIRATORY TRACT INFECTION [None]
  - ASTHMA [None]
  - PEAK EXPIRATORY FLOW RATE INCREASED [None]
  - ARTHRALGIA [None]
  - INJECTION SITE PAIN [None]
  - EOSINOPHIL COUNT INCREASED [None]
